FAERS Safety Report 9469421 (Version 3)
Quarter: 2013Q4

REPORT INFORMATION
  Report Type: Report from Study
  Country: JP (occurrence: JP)
  Receive Date: 20130822
  Receipt Date: 20131220
  Transmission Date: 20140711
  Serious: Yes (Death, Hospitalization, Other)
  Sender: FDA-Public Use
  Company Number: JP-ROCHE-1264358

PATIENT
  Age: 87 Year
  Sex: Female
  Weight: 40 kg

DRUGS (6)
  1. METHOXY POLYETHYLENE GLYCOL-EPOETIN BETA [Suspect]
     Indication: NEPHROGENIC ANAEMIA
     Route: 042
     Dates: start: 20120724, end: 20130326
  2. THYRADIN-S [Concomitant]
     Route: 048
     Dates: end: 20130326
  3. ANPLAG [Concomitant]
     Route: 048
     Dates: end: 20130326
  4. CILOSTAZOL [Concomitant]
     Route: 048
     Dates: end: 20130326
  5. SIGMART [Concomitant]
     Route: 048
     Dates: end: 201303
  6. NITROGLYCERIN [Concomitant]
     Route: 062
     Dates: end: 20130326

REACTIONS (3)
  - Cardiac arrest [Fatal]
  - Cardiac failure [Not Recovered/Not Resolved]
  - Anaemia [Unknown]
